FAERS Safety Report 24553489 (Version 1)
Quarter: 2024Q4

REPORT INFORMATION
  Report Type: Report from Study
  Country: US (occurrence: US)
  Receive Date: 20241028
  Receipt Date: 20241028
  Transmission Date: 20250114
  Serious: No
  Sender: ROCHE
  Company Number: US-ROCHE-3524242

PATIENT
  Age: 14 Year
  Sex: Male
  Weight: 50.6 kg

DRUGS (1)
  1. NUTROPIN AQ [Suspect]
     Active Substance: SOMATROPIN
     Indication: Short stature
     Route: 058
     Dates: start: 20210307

REACTIONS (6)
  - Headache [Unknown]
  - Acne [Unknown]
  - Rash [Unknown]
  - Thermal burn [Unknown]
  - Skin odour abnormal [Unknown]
  - Body temperature increased [Unknown]
